FAERS Safety Report 17548978 (Version 3)
Quarter: 2020Q3

REPORT INFORMATION
  Report Type: Spontaneous
  Country: JP (occurrence: JP)
  Receive Date: 20200317
  Receipt Date: 20200907
  Transmission Date: 20201102
  Serious: Yes (Hospitalization, Other)
  Sender: FDA-Public Use
  Company Number: JP-ABBVIE-20K-087-3316607-00

PATIENT
  Age: 64 Year
  Sex: Female
  Weight: 68 kg

DRUGS (10)
  1. FENTANYL. [Suspect]
     Active Substance: FENTANYL
     Route: 008
     Dates: start: 202003
  2. MARCAINE [Concomitant]
     Active Substance: BUPIVACAINE HYDROCHLORIDE
     Indication: EPIDURAL ANAESTHESIA
     Route: 037
     Dates: start: 20200303, end: 20200303
  3. PROPOFOL. [Concomitant]
     Active Substance: PROPOFOL
     Indication: INDUCTION AND MAINTENANCE OF ANAESTHESIA
     Route: 042
     Dates: start: 20200303, end: 20200303
  4. FENTANYL. [Suspect]
     Active Substance: FENTANYL
     Indication: POSTOPERATIVE ANALGESIA
     Route: 008
     Dates: start: 20200303, end: 20200304
  5. DORMICUM [Concomitant]
     Indication: ANAESTHESIA
     Dosage: DAILY DOSE?: 1?2 ML, 2 SHOTS
     Route: 042
     Dates: start: 20200303, end: 20200303
  6. POPSCAINE [Suspect]
     Active Substance: LEVOBUPIVACAINE HYDROCHLORIDE
     Indication: POSTOPERATIVE ANALGESIA
     Dosage: BAG 250MG/100ML
     Route: 008
     Dates: start: 20200303, end: 20200303
  7. DORMICUM [Concomitant]
     Indication: SEDATION
  8. CEFAMEZIN ALPHA [Concomitant]
     Active Substance: CEFAZOLIN SODIUM
     Indication: INFECTION PROPHYLAXIS
     Route: 042
     Dates: start: 20200303, end: 20200303
  9. POPSCAINE [Suspect]
     Active Substance: LEVOBUPIVACAINE HYDROCHLORIDE
     Indication: EPIDURAL ANALGESIA
     Route: 008
     Dates: start: 20200304, end: 20200304
  10. MARCAINE [Concomitant]
     Active Substance: BUPIVACAINE HYDROCHLORIDE
     Indication: ANAESTHESIA

REACTIONS (2)
  - Monoplegia [Not Recovered/Not Resolved]
  - Pulmonary embolism [Recovering/Resolving]

NARRATIVE: CASE EVENT DATE: 2020
